FAERS Safety Report 25422877 (Version 1)
Quarter: 2025Q2

REPORT INFORMATION
  Report Type: Spontaneous
  Country: GB (occurrence: GB)
  Receive Date: 20250611
  Receipt Date: 20250611
  Transmission Date: 20250717
  Serious: Yes (Other)
  Sender: ADVANZ PHARMA
  Company Number: None

PATIENT

DRUGS (22)
  1. PREDNISOLONE [Suspect]
     Active Substance: PREDNISOLONE
     Indication: Immunosuppression
     Dates: start: 20190109
  2. LINAGLIPTIN [Concomitant]
     Active Substance: LINAGLIPTIN
     Indication: Pain
     Dates: start: 20220505
  3. OMEPRAZOLE [Concomitant]
     Active Substance: OMEPRAZOLE
  4. RAMIPRIL [Concomitant]
     Active Substance: RAMIPRIL
  5. ALFACALCIDOL [Concomitant]
     Active Substance: ALFACALCIDOL
  6. ALLOPURINOL [Concomitant]
     Active Substance: ALLOPURINOL
  7. AMLODIPINE [Concomitant]
     Active Substance: AMLODIPINE BESYLATE
  8. BISOPROLOL [Concomitant]
     Active Substance: BISOPROLOL
  9. ROPINIROLE [Concomitant]
     Active Substance: ROPINIROLE
  10. CARBOCYSTEINE [Concomitant]
     Active Substance: CARBOCYSTEINE
  11. Chlorophenamine [Concomitant]
  12. EZETIMIBE [Concomitant]
     Active Substance: EZETIMIBE
  13. FUROSEMIDE [Concomitant]
     Active Substance: FUROSEMIDE
  14. PREGABALIN [Concomitant]
     Active Substance: PREGABALIN
  15. GINKGO [Concomitant]
     Active Substance: GINKGO
  16. ASIAN GINSENG [Concomitant]
     Active Substance: ASIAN GINSENG
  17. FISH OIL [Concomitant]
     Active Substance: FISH OIL
  18. VITAMIN D NOS [Concomitant]
     Active Substance: CHOLECALCIFEROL\ERGOCALCIFEROL
  19. MYCOPHENOLIC ACID [Concomitant]
     Active Substance: MYCOPHENOLIC ACID
  20. TACROLIMUS [Concomitant]
     Active Substance: TACROLIMUS
  21. Glucosamine sulphat [Concomitant]
  22. VITAMIN B-COMPLEX [Concomitant]
     Active Substance: DEXPANTHENOL\NIACINAMIDE\PYRIDOXINE HYDROCHLORIDE\RIBOFLAVIN 5^-PHOSPHATE SODIUM\THIAMINE HYDROCHLOR

REACTIONS (6)
  - Ocular hyperaemia [Unknown]
  - Arthralgia [Not Recovered/Not Resolved]
  - Fluid retention [Not Recovered/Not Resolved]
  - Hypertension [Not Recovered/Not Resolved]
  - Osteoporosis [Not Recovered/Not Resolved]
  - Weight increased [Not Recovered/Not Resolved]
